FAERS Safety Report 8451310-2 (Version None)
Quarter: 2012Q2

REPORT INFORMATION
  Report Type: 
  Country: None (occurrence: None)
  Receive Date: 20120620
  Receipt Date: 20120223
  Transmission Date: 20120825
  Serious: No
  Sender: FDA-Public Use
  Company Number: US-VERTEX PHARMACEUTICALS INC.-AE-2012-002597

PATIENT
  Sex: Female
  Weight: 108.96 kg

DRUGS (15)
  1. AMBIEN [Concomitant]
     Route: 048
  2. LAMICTAL [Concomitant]
     Route: 048
  3. LEXAPRO [Concomitant]
     Indication: DEPRESSION
     Route: 048
  4. PRANDIN [Concomitant]
     Indication: DIABETES MELLITUS
     Route: 048
  5. SYNTHROID [Concomitant]
     Indication: HYPOTHYROIDISM
     Route: 048
  6. INCIVEK [Suspect]
     Indication: HEPATITIS C
     Route: 048
     Dates: start: 20120219
  7. MULTI-VITAMIN [Concomitant]
     Route: 048
  8. PEGASYS [Concomitant]
     Indication: HEPATITIS C
     Dates: start: 20120219
  9. ALPRAZOLAM [Concomitant]
     Indication: ANXIETY
     Route: 048
  10. TRAMADOL HCL [Concomitant]
     Indication: PAIN
     Route: 048
  11. FLEXERIL [Concomitant]
     Indication: MYALGIA
     Route: 048
  12. RIBAVIRIN [Concomitant]
     Indication: HEPATITIS C
     Dates: start: 20120219
  13. ACETAMINOPHEN [Concomitant]
     Indication: PAIN
     Route: 048
  14. BYETTA [Concomitant]
     Indication: DIABETES MELLITUS
     Route: 058
  15. LISINOPRIL [Concomitant]
     Indication: RENAL HYPERTENSION
     Route: 048

REACTIONS (1)
  - DIARRHOEA [None]
